FAERS Safety Report 14328814 (Version 1)
Quarter: 2017Q4

REPORT INFORMATION
  Report Type: Spontaneous
  Country: DE (occurrence: DE)
  Receive Date: 20171227
  Receipt Date: 20171227
  Transmission Date: 20180321
  Serious: Yes (Hospitalization)
  Sender: FDA-Public Use
  Company Number: PHHY2012DE143909

PATIENT
  Age: 65 Year
  Sex: Female
  Weight: 51 kg

DRUGS (12)
  1. PACLITAXEL. [Suspect]
     Active Substance: PACLITAXEL
     Dosage: 274.75 MG, Q3W
     Route: 042
     Dates: start: 20121002
  2. AVASTIN [Suspect]
     Active Substance: BEVACIZUMAB
     Dosage: 795 MG, UNK (MOST RECENT DOSE PRIOR TO DEEP VEIN THREMBOSIS)
     Route: 042
  3. BISOPROLOL [Concomitant]
     Active Substance: BISOPROLOL
     Indication: HYPERTENSION
     Dosage: 2.5 MG, QD
     Route: 048
     Dates: start: 20121012
  4. BISOPROLOL [Concomitant]
     Active Substance: BISOPROLOL
     Dosage: 2.5 MG, QD (LAST DOSE PRIOR TO THE EVENT)
     Route: 048
     Dates: start: 20121102
  5. CARBOPLATIN. [Suspect]
     Active Substance: CARBOPLATIN
     Dosage: 422.88 MG, UNK
     Route: 042
  6. PACLITAXEL. [Suspect]
     Active Substance: PACLITAXEL
     Indication: OVARIAN CANCER
     Dosage: 295.75 MG, Q3W
     Route: 042
     Dates: start: 20120910
  7. CARBOPLATIN. [Suspect]
     Active Substance: CARBOPLATIN
     Dosage: 383.36 MG, UNK
     Route: 042
  8. PACLITAXEL. [Suspect]
     Active Substance: PACLITAXEL
     Dosage: 274.75 MG, UNK
     Route: 042
  9. PACLITAXEL. [Suspect]
     Active Substance: PACLITAXEL
     Dosage: 274.75 MG, UNK
     Route: 042
  10. AVASTIN [Suspect]
     Active Substance: BEVACIZUMAB
     Dosage: 795 MG, UNK
     Route: 042
  11. AVASTIN [Suspect]
     Active Substance: BEVACIZUMAB
     Indication: OVARIAN CANCER
     Dosage: 795 MG, Q3W
     Route: 042
     Dates: start: 20121002
  12. CARBOPLATIN. [Suspect]
     Active Substance: CARBOPLATIN
     Indication: OVARIAN CANCER
     Dosage: 359.96 MG, Q3W
     Route: 042
     Dates: start: 20120910

REACTIONS (5)
  - Urinary tract infection [Recovered/Resolved]
  - Tachycardia [Recovered/Resolved]
  - Deep vein thrombosis [Not Recovered/Not Resolved]
  - Pyrexia [Recovered/Resolved]
  - Leukopenia [Recovered/Resolved]

NARRATIVE: CASE EVENT DATE: 20121101
